FAERS Safety Report 17112972 (Version 1)
Quarter: 2019Q4

REPORT INFORMATION
  Report Type: Spontaneous
  Country: US (occurrence: US)
  Receive Date: 20191204
  Receipt Date: 20191204
  Transmission Date: 20200122
  Serious: Yes (Death, Hospitalization)
  Sender: FDA-Public Use
  Company Number: US-TEVA-2019-US-1146536

PATIENT
  Age: 61 Year
  Sex: Male

DRUGS (1)
  1. METHYLPREDNISOLONE. [Suspect]
     Active Substance: METHYLPREDNISOLONE
     Indication: NEUROSARCOIDOSIS
     Route: 042

REACTIONS (4)
  - Central nervous system fungal infection [Fatal]
  - Basal ganglia infarction [Fatal]
  - Mucormycosis [Fatal]
  - Eye infection fungal [Fatal]
